FAERS Safety Report 5458160-X (Version None)
Quarter: 2007Q3

REPORT INFORMATION
  Report Type: 
  Country: None (occurrence: None)
  Receive Date: 20070917
  Receipt Date: 20070906
  Transmission Date: 20080115
  Serious: Yes (Hospitalization)
  Sender: FDA-Public Use
  Company Number: URSO-2007-173

PATIENT
  Age: 38 Year
  Sex: Male

DRUGS (3)
  1. URSO 250 [Suspect]
     Indication: HEPATIC FUNCTION ABNORMAL
     Dosage: 300 MG ORAL
     Route: 048
     Dates: start: 20070606, end: 20070609
  2. NIZATIDINE [Suspect]
     Indication: GASTRITIS
     Dosage: 300 MG ORAL
     Route: 048
     Dates: start: 20070606, end: 20070609
  3. STRONGER NEO MINOPHAGEN C (GLYCYRRHIZIN/GLYCINE/CYSTEINE COMBINED DRUG [Concomitant]

REACTIONS (4)
  - ALANINE AMINOTRANSFERASE INCREASED [None]
  - CONDITION AGGRAVATED [None]
  - HEPATIC FUNCTION ABNORMAL [None]
  - LYMPHOCYTE STIMULATION TEST POSITIVE [None]
